FAERS Safety Report 8366321-5 (Version None)
Quarter: 2012Q2

REPORT INFORMATION
  Report Type: 
  Country: None (occurrence: None)
  Receive Date: 20120517
  Receipt Date: 20120514
  Transmission Date: 20120825
  Serious: Yes (Other)
  Sender: FDA-Public Use
  Company Number: PHHY2012ES025341

PATIENT
  Age: 80 Year
  Sex: Female

DRUGS (7)
  1. AMLODIPINE [Suspect]
     Dosage: 10 MG, UNK
     Route: 048
     Dates: start: 20110118
  2. GLIMEPIRIDE [Suspect]
     Dosage: 1 MG, UNK
     Route: 048
     Dates: start: 20091214
  3. IBUPROFEN [Suspect]
     Route: 048
     Dates: start: 20110131
  4. ASPIRIN [Suspect]
     Dosage: 100 MG, UNK
     Route: 048
     Dates: start: 20110221
  5. EXELON [Suspect]
     Dosage: 4.6 MG,
     Route: 062
     Dates: start: 20110221, end: 20110415
  6. AMBROXOL [Concomitant]
     Route: 048
     Dates: start: 20110321
  7. METFORMIN HCL [Concomitant]
     Dosage: 1.7 G, UNK
     Route: 048
     Dates: start: 20050110

REACTIONS (1)
  - LIVER FUNCTION TEST ABNORMAL [None]
